FAERS Safety Report 8448214-8 (Version None)
Quarter: 2012Q2

REPORT INFORMATION
  Report Type: 
  Country: None (occurrence: None)
  Receive Date: 20120619
  Receipt Date: 20120611
  Transmission Date: 20120825
  Serious: Yes (Hospitalization)
  Sender: FDA-Public Use
  Company Number: CA-ELI_LILLY_AND_COMPANY-CA201206004402

PATIENT
  Age: 63 Year
  Sex: Female

DRUGS (9)
  1. MULTI-VITAMINS [Concomitant]
  2. CALCIUM [Concomitant]
  3. DETROL LA [Concomitant]
  4. PERCOCET [Concomitant]
  5. ASPIRIN [Concomitant]
  6. SPIRULINA [Concomitant]
  7. VITAMIN D [Concomitant]
  8. ENSURE                             /06184901/ [Concomitant]
  9. FORTEO [Suspect]
     Indication: OSTEOPOROSIS
     Dosage: 20 UG, QD
     Route: 058
     Dates: start: 20110209

REACTIONS (2)
  - RIB FRACTURE [None]
  - FALL [None]
